FAERS Safety Report 10619481 (Version 1)
Quarter: 2014Q4

REPORT INFORMATION
  Report Type: Spontaneous
  Country: US (occurrence: US)
  Receive Date: 20141202
  Receipt Date: 20141202
  Transmission Date: 20150529
  Serious: No
  Sender: FDA-Public Use
  Company Number: US-009507513-1411USA004565

PATIENT
  Age: 21 Year
  Sex: Female

DRUGS (1)
  1. IMPLANON [Suspect]
     Active Substance: ETONOGESTREL
     Indication: CONTRACEPTION
     Dosage: UNK
     Route: 059
     Dates: start: 201111

REACTIONS (5)
  - Fatigue [Unknown]
  - Menometrorrhagia [Unknown]
  - Asthenia [Unknown]
  - Acne [Unknown]
  - Weight loss poor [Unknown]

NARRATIVE: CASE EVENT DATE: 2013
